FAERS Safety Report 24052998 (Version 1)
Quarter: 2024Q3

REPORT INFORMATION
  Report Type: Report from Study
  Country: GT (occurrence: GT)
  Receive Date: 20240705
  Receipt Date: 20240705
  Transmission Date: 20241016
  Serious: Yes (Hospitalization)
  Sender: NOVARTIS
  Company Number: GT-002147023-NVSC2024GT138012

PATIENT
  Sex: Male

DRUGS (1)
  1. HYDROCHLOROTHIAZIDE\VALSARTAN [Suspect]
     Active Substance: HYDROCHLOROTHIAZIDE\VALSARTAN
     Indication: Hypertension
     Dosage: 160/25MG, QD
     Route: 048
     Dates: start: 2015, end: 20240626

REACTIONS (2)
  - Blood sodium decreased [Recovering/Resolving]
  - Malaise [Unknown]
